FAERS Safety Report 9378579 (Version 1)
Quarter: 2013Q3

REPORT INFORMATION
  Report Type: Report from Study
  Country: US (occurrence: US)
  Receive Date: 20130702
  Receipt Date: 20130702
  Transmission Date: 20140515
  Serious: Yes (Other)
  Sender: FDA-Public Use
  Company Number: US-ROCHE-1242509

PATIENT
  Sex: Female

DRUGS (2)
  1. XOLAIR [Suspect]
     Indication: ASTHMA
     Route: 065
     Dates: end: 2010
  2. XOLAIR [Suspect]
     Indication: RHINITIS ALLERGIC

REACTIONS (3)
  - Infection [Recovered/Resolved]
  - Pneumothorax [Unknown]
  - Drug ineffective [Unknown]
